FAERS Safety Report 7215343-6 (Version None)
Quarter: 2011Q1

REPORT INFORMATION
  Report Type: 
  Country: None (occurrence: None)
  Receive Date: 20110105
  Receipt Date: 20110105
  Transmission Date: 20110831
  Serious: Yes (Other)
  Sender: FDA-Public Use
  Company Number: None

PATIENT
  Age: 57 Year
  Sex: Male
  Weight: 90.1 kg

DRUGS (2)
  1. EXJADE [Suspect]
     Indication: INFUSION RELATED REACTION
     Dosage: 1-3 DAILY PO
     Route: 048
     Dates: start: 20101001, end: 20110101
  2. EXJADE [Suspect]
     Indication: IRON OVERLOAD
     Dosage: 1-3 DAILY PO
     Route: 048
     Dates: start: 20101001, end: 20110101

REACTIONS (3)
  - DIARRHOEA [None]
  - FLATULENCE [None]
  - ABDOMINAL PAIN [None]
